FAERS Safety Report 9914599 (Version 1)
Quarter: 2014Q1

REPORT INFORMATION
  Report Type: Spontaneous
  Country: US (occurrence: US)
  Receive Date: 20140220
  Receipt Date: 20140220
  Transmission Date: 20141002
  Serious: Yes (Other)
  Sender: FDA-Public Use
  Company Number: US-INCYTE CORPORATION-2014IN000362

PATIENT
  Age: 65 Year
  Sex: Male

DRUGS (2)
  1. JAKAFI [Suspect]
     Indication: MYELOFIBROSIS
     Dosage: NOT SPECIFIED
     Route: 048
     Dates: start: 2013
  2. JAKAFI [Suspect]
     Dosage: NOT SPECIFIED
     Route: 048

REACTIONS (1)
  - Tuberculosis [Recovered/Resolved]
